FAERS Safety Report 10244416 (Version 1)
Quarter: 2014Q1

REPORT INFORMATION
  Report Type: Spontaneous
  Country: US (occurrence: None)
  Receive Date: 20140306
  Receipt Date: 20140306
  Transmission Date: 20141002
  Serious: Yes (Other)
  Sender: FDA-Public Use
  Company Number: 163-21880-13013895

PATIENT
  Age: 66 Year
  Sex: Female
  Weight: 70.31 kg

DRUGS (25)
  1. REVLIMID (LENALIDOMIDE) (10 MILLIGRAM, CAPSULES) [Suspect]
     Indication: PLASMA CELL MYELOMA
     Route: 048
     Dates: start: 20101029
  2. PANTOPRAZOLE (UKNOWN) [Concomitant]
  3. CALCITRIOL (UNKNOWN) [Concomitant]
  4. LYRICA (PREGABALIN) (UNKNOWN) [Concomitant]
  5. POTASSIUM CHLORIDE (UNKNOWN) [Concomitant]
  6. LEXAPRO (ESCITALOPRAM OXALATE) (UNKNOWN) [Concomitant]
  7. OXYCONTIN (OXYCODONE HYDROCHLORIDE) (UNKNOWN) [Concomitant]
  8. RANITIDINE (UNKNOWN) [Concomitant]
  9. ATROPINE (UNKNOWN) [Concomitant]
  10. LEVOTHYROXINE (UNKNOWN) [Concomitant]
  11. VALTREX (VALACICLOVIR HYDROCHLORIDE) (UNKNOWN) [Concomitant]
  12. ALEVE (NAPROXEN SODIUM) (UNKNOWN) [Concomitant]
  13. PACKED RED CELLS (UNKNOWN) [Concomitant]
  14. DECADRON (DEXAMETHASONE) (UNKNOWN) [Concomitant]
  15. ZOMETA (ZOLEDRONIC ACID) (UNKNOWN) [Concomitant]
  16. OXYCODONE (UNKNOWN) [Concomitant]
  17. SKELAXIN (METAXALONE) (UNKNOWN) [Concomitant]
  18. COLACE (DOCUSATE SODUM) (UNKNOWN) [Concomitant]
  19. MULTIVITAMINS (UNKNOWN) [Concomitant]
  20. VITAMIN D (ERGOCALCIFEROL) (UNKNOWN) [Concomitant]
  21. CALCIUM WITH VITAMIN D (UNKNOWN) [Concomitant]
  22. AMITRIPTYLINE (UNKNOWN) [Concomitant]
  23. ZANTAC (RANITIDINE HYDROCHLORIDE) [Concomitant]
  24. FML (FLUOROMETHOLONE) (OINTMENT) [Concomitant]
  25. LOVASTATIN (UNKNOWN) [Concomitant]

REACTIONS (2)
  - Pancytopenia [None]
  - Ophthalmic herpes zoster [None]
